FAERS Safety Report 9026366 (Version 1)
Quarter: 2013Q1

REPORT INFORMATION
  Report Type: Spontaneous
  Country: DE (occurrence: None)
  Receive Date: 20130104
  Receipt Date: 20130104
  Transmission Date: 20140127
  Serious: Yes (Other)
  Sender: FDA-Public Use
  Company Number: 2012-22187

PATIENT
  Sex: Female
  Weight: 3 kg

DRUGS (4)
  1. DICLOFENAC (UNKNOWN) (DICLOFENAC) UNK, UNK UNK [Suspect]
     Indication: HEADACHE
     Route: 064
  2. HYPNOREX (LITHIUM CARBONATE) [Concomitant]
  3. VENLAFAXIN (VENLAFAXINE HYDROCHLORIDE) [Concomitant]
  4. DOPEGYT (METHYLDOPA) [Concomitant]

REACTIONS (9)
  - Neonatal respiratory distress syndrome [None]
  - Atrial septal defect [None]
  - Right ventricular hypertrophy [None]
  - Maternal drugs affecting foetus [None]
  - Polyhydramnios [None]
  - Caesarean section [None]
  - Foetal heart rate deceleration [None]
  - Meconium in amniotic fluid [None]
  - Acute respiratory distress syndrome [None]
